FAERS Safety Report 6644087-4 (Version None)
Quarter: 2010Q1

REPORT INFORMATION
  Report Type: 
  Country: None (occurrence: None)
  Receive Date: 20100317
  Receipt Date: 20100303
  Transmission Date: 20100710
  Serious: Yes (Hospitalization)
  Sender: FDA-Public Use
  Company Number: 008817

PATIENT
  Age: 85 Year
  Sex: Male

DRUGS (6)
  1. PLETAL [Suspect]
     Indication: CEREBRAL INFARCTION
     Dosage: 100 MG, QD; ORAL
     Route: 048
     Dates: start: 20100118, end: 20100128
  2. APRITONE (APRINDINE HYDROCHLORIDE) CAPSULE, 20 MG [Suspect]
     Dosage: 20 MG, BID ORAL
     Route: 048
     Dates: start: 20100118, end: 20100129
  3. ASPENON (APRINDINE HYDROCHLORIDE) CAPSULE [Concomitant]
  4. ATENOTE (CARVEDILOL) TABLET [Concomitant]
  5. ALLOPURINOL [Concomitant]
  6. NORVASC [Concomitant]

REACTIONS (1)
  - AGRANULOCYTOSIS [None]
